FAERS Safety Report 12586704 (Version 1)
Quarter: 2016Q3

REPORT INFORMATION
  Report Type: Spontaneous
  Country: US (occurrence: None)
  Receive Date: 20160722
  Receipt Date: 20160722
  Transmission Date: 20161109
  Serious: Yes (Hospitalization)
  Sender: FDA-Public Use
  Company Number: None

PATIENT
  Sex: Female

DRUGS (23)
  1. ALBUTEROL. [Concomitant]
     Active Substance: ALBUTEROL
  2. VITAMIN D2 [Concomitant]
     Active Substance: ERGOCALCIFEROL
  3. SYMBICORT [Concomitant]
     Active Substance: BUDESONIDE\FORMOTEROL FUMARATE DIHYDRATE
  4. XANAX [Concomitant]
     Active Substance: ALPRAZOLAM
  5. FUROSEMIDE. [Concomitant]
     Active Substance: FUROSEMIDE
  6. TARCEVA [Concomitant]
     Active Substance: ERLOTINIB HYDROCHLORIDE
  7. CLARITIN [Concomitant]
     Active Substance: LORATADINE
  8. POTASSIUM CHLOIRDE [Concomitant]
  9. DOXYCYCLINE. [Concomitant]
     Active Substance: DOXYCYCLINE
  10. RECLAST [Suspect]
     Active Substance: ZOLEDRONIC ACID
     Dosage: 1 INJECTION (S) A YEAR
  11. RESTASIS [Concomitant]
     Active Substance: CYCLOSPORINE
  12. LEVOTHYROXINE. [Concomitant]
     Active Substance: LEVOTHYROXINE
  13. METFORMIN [Concomitant]
     Active Substance: METFORMIN HYDROCHLORIDE
  14. LOSARTAN. [Concomitant]
     Active Substance: LOSARTAN
  15. SPIRIVA [Concomitant]
     Active Substance: TIOTROPIUM BROMIDE MONOHYDRATE
  16. ATROVASTATIN [Concomitant]
     Active Substance: ATORVASTATIN CALCIUM
  17. MIRAPEX [Concomitant]
     Active Substance: PRAMIPEXOLE DIHYDROCHLORIDE
  18. ASPIRIN. [Concomitant]
     Active Substance: ASPIRIN
  19. BENADRYL [Concomitant]
     Active Substance: DIPHENHYDRAMINE HYDROCHLORIDE
  20. FLONASE [Concomitant]
     Active Substance: FLUTICASONE PROPIONATE
  21. MONTELUKAST [Concomitant]
     Active Substance: MONTELUKAST SODIUM
  22. EFFEXOR XR [Concomitant]
     Active Substance: VENLAFAXINE HYDROCHLORIDE
  23. OXYGEN. [Concomitant]
     Active Substance: OXYGEN

REACTIONS (5)
  - Dyspnoea [None]
  - Peripheral swelling [None]
  - Chest pain [None]
  - Gait disturbance [None]
  - Oxygen saturation decreased [None]
